FAERS Safety Report 5291241-2 (Version None)
Quarter: 2007Q2

REPORT INFORMATION
  Report Type: 
  Country: None (occurrence: None)
  Receive Date: 20070402
  Receipt Date: 20070320
  Transmission Date: 20071010
  Serious: Yes (Disabling)
  Sender: FDA-Public Use
  Company Number: 2007RR-06474

PATIENT
  Age: 80 Year
  Sex: Female
  Weight: 70 kg

DRUGS (5)
  1. SIMVASTATIN [Suspect]
     Indication: BLOOD CHOLESTEROL INCREASED
     Dosage: 40 MG, ORAL
     Route: 048
     Dates: start: 20060401, end: 20070101
  2. CO-PROXAMOL [Concomitant]
  3. DICLOFENAC (DICLOFENAC) [Concomitant]
  4. METFORMIN HYDROCHLORIDE (METFORMIN) [Concomitant]
  5. TRAMADOL HYDROCHLORIDE (TRAMADOL) [Concomitant]

REACTIONS (7)
  - ABDOMINAL PAIN [None]
  - ANOREXIA [None]
  - DIARRHOEA [None]
  - MUSCLE ATROPHY [None]
  - MYALGIA [None]
  - NAUSEA [None]
  - WEIGHT DECREASED [None]
